FAERS Safety Report 25199605 (Version 1)
Quarter: 2025Q2

REPORT INFORMATION
  Report Type: Spontaneous
  Country: US (occurrence: None)
  Receive Date: 20250415
  Receipt Date: 20250415
  Transmission Date: 20250716
  Serious: No
  Sender: FDA-CTU
  Company Number: None

PATIENT
  Age: 39 Year
  Sex: Male
  Weight: 90 kg

DRUGS (7)
  1. TIRZEPATIDE [Suspect]
     Active Substance: TIRZEPATIDE
     Indication: Weight control
     Route: 050
     Dates: start: 20250327
  2. ESCITALOPRAM [Concomitant]
     Active Substance: ESCITALOPRAM OXALATE
  3. ABILIFY [Concomitant]
     Active Substance: ARIPIPRAZOLE
  4. VIAGRA [Concomitant]
     Active Substance: SILDENAFIL CITRATE
  5. Sidelnafil [Concomitant]
  6. TRUVADA [Concomitant]
     Active Substance: EMTRICITABINE\TENOFOVIR DISOPROXIL FUMARATE
  7. VITAMINS [Concomitant]
     Active Substance: VITAMINS

REACTIONS (4)
  - Nausea [None]
  - Vomiting [None]
  - Fatigue [None]
  - Bedridden [None]

NARRATIVE: CASE EVENT DATE: 20250327
